FAERS Safety Report 15878998 (Version 1)
Quarter: 2019Q1

REPORT INFORMATION
  Report Type: Spontaneous
  Country: FR (occurrence: FR)
  Receive Date: 20190128
  Receipt Date: 20190128
  Transmission Date: 20190417
  Serious: Yes (Hospitalization)
  Sender: FDA-Public Use
  Company Number: FR-ZYDUS-032983

PATIENT
  Age: 83 Year
  Sex: Male

DRUGS (2)
  1. AMOXICILLIN/CLAVULANIC ACID [Suspect]
     Active Substance: AMOXICILLIN\CLAVULANIC ACID
     Indication: LUNG DISORDER
     Route: 048
     Dates: start: 20180914, end: 20180917
  2. IRBESARTAN. [Suspect]
     Active Substance: IRBESARTAN
     Indication: PRODUCT USED FOR UNKNOWN INDICATION
     Route: 048
     Dates: end: 20180917

REACTIONS (2)
  - Acute kidney injury [Recovered/Resolved with Sequelae]
  - Nephritis allergic [Recovered/Resolved with Sequelae]

NARRATIVE: CASE EVENT DATE: 20180917
